FAERS Safety Report 6879614-5 (Version None)
Quarter: 2010Q2

REPORT INFORMATION
  Report Type: 
  Country: None (occurrence: None)
  Receive Date: 20100625
  Receipt Date: 20090713
  Transmission Date: 20101027
  Serious: Yes (Other)
  Sender: FDA-Public Use
  Company Number: 2009240129

PATIENT
  Age: 56 Year
  Sex: Female
  Weight: 91 kg

DRUGS (3)
  1. ESTRING [Suspect]
     Indication: HORMONE REPLACEMENT THERAPY
     Dates: start: 19990101
  2. PREMARIN [Suspect]
     Dosage: 0.625 MG
     Dates: start: 19700101, end: 20020101
  3. ALBUTEROL [Concomitant]

REACTIONS (1)
  - BREAST CANCER FEMALE [None]
